FAERS Safety Report 8962987 (Version 1)
Quarter: 2012Q4

REPORT INFORMATION
  Report Type: 
  Country: CA (occurrence: CA)
  Receive Date: 20121214
  Receipt Date: 20121214
  Transmission Date: 20130627
  Serious: Yes (Hospitalization)
  Sender: FDA-Public Use
  Company Number: CA-SANOFI-AVENTIS-2012SA089938

PATIENT
  Age: 59 Year
  Sex: Male
  Weight: 82.4 kg

DRUGS (8)
  1. PLAVIX [Suspect]
     Indication: DRUG USE FOR UNKNOWN INDICATION
     Route: 065
     Dates: start: 20090217
  2. ASPIRIN [Suspect]
     Indication: DRUG USE FOR UNKNOWN INDICATION
     Route: 065
     Dates: start: 20090217
  3. BLINDED THERAPY [Concomitant]
     Dates: start: 20090422
  4. NITRO-SPRAY [Concomitant]
     Dates: start: 20090217
  5. LOPRESSOR [Concomitant]
     Dates: start: 20090217
  6. PERINDOPRIL ERBUMINE [Concomitant]
     Dates: start: 20090217
  7. TYLENOL [Concomitant]
     Dates: start: 20090515
  8. ATORVASTATIN CALCIUM [Concomitant]
     Dates: start: 20090514

REACTIONS (1)
  - Dyspepsia [Recovered/Resolved]
